FAERS Safety Report 18981276 (Version 2)
Quarter: 2021Q1

REPORT INFORMATION
  Report Type: Spontaneous
  Country: US (occurrence: US)
  Receive Date: 20210308
  Receipt Date: 20210312
  Transmission Date: 20210420
  Serious: No
  Sender: FDA-Public Use
  Company Number: US-GW PHARMA-202102USGW00871

PATIENT

DRUGS (2)
  1. EPIDIOLEX [Suspect]
     Active Substance: CANNABIDIOL
     Dosage: 20MG/KG/DAY, 300 MILLIGRAM, BID
     Route: 048
     Dates: start: 202102
  2. EPIDIOLEX [Suspect]
     Active Substance: CANNABIDIOL
     Indication: EPILEPSY
     Dosage: 300 MILLIGRAM, BID
     Route: 048
     Dates: start: 20200716, end: 202102

REACTIONS (7)
  - Product use in unapproved indication [Unknown]
  - Panic attack [Unknown]
  - Poor quality sleep [Unknown]
  - Palpitations [Unknown]
  - Product dose omission issue [Recovered/Resolved]
  - Dyspnoea [Unknown]
  - Chest pain [Unknown]

NARRATIVE: CASE EVENT DATE: 202102
